FAERS Safety Report 24321515 (Version 2)
Quarter: 2024Q4

REPORT INFORMATION
  Report Type: Spontaneous
  Country: US (occurrence: US)
  Receive Date: 20240916
  Receipt Date: 20241016
  Transmission Date: 20250115
  Serious: No
  Sender: LUPIN
  Company Number: US-LUPIN PHARMACEUTICALS INC.-2024-08591

PATIENT

DRUGS (1)
  1. TESTOSTERONE [Suspect]
     Active Substance: TESTOSTERONE
     Indication: Product used for unknown indication
     Dosage: UNK
     Route: 061

REACTIONS (4)
  - Device delivery system issue [Unknown]
  - Incorrect dose administered [Unknown]
  - Drug dose omission by device [Unknown]
  - No adverse event [Unknown]
